FAERS Safety Report 7799327-5 (Version None)
Quarter: 2011Q4

REPORT INFORMATION
  Report Type: 
  Country: None (occurrence: None)
  Receive Date: 20111006
  Receipt Date: 20110927
  Transmission Date: 20120403
  Serious: Yes (Other)
  Sender: FDA-Public Use
  Company Number: PHHY2011GB80245

PATIENT
  Sex: Female

DRUGS (3)
  1. PAROXETINE HCL [Suspect]
     Dosage: 20 MG, TID
     Route: 064
     Dates: start: 19990101
  2. DOMPERIDONE [Suspect]
     Route: 064
  3. PAROXETINE HCL [Suspect]
     Route: 064
     Dates: start: 19990801

REACTIONS (2)
  - MATERNAL EXPOSURE DURING PREGNANCY [None]
  - PREMATURE BABY [None]
